FAERS Safety Report 17106976 (Version 4)
Quarter: 2022Q2

REPORT INFORMATION
  Report Type: Spontaneous
  Country: US (occurrence: US)
  Receive Date: 20191203
  Receipt Date: 20220525
  Transmission Date: 20220721
  Serious: Yes (Other)
  Sender: FDA-Public Use
  Company Number: US-PFIZER INC-2019518208

PATIENT
  Age: 81 Year
  Sex: Female
  Weight: 92.08 kg

DRUGS (1)
  1. XELJANZ XR [Suspect]
     Active Substance: TOFACITINIB CITRATE
     Indication: Rheumatoid arthritis
     Dosage: 11 MG, 1X/DAY

REACTIONS (4)
  - Rheumatoid arthritis [Unknown]
  - Intentional product misuse [Unknown]
  - Eye infection [Unknown]
  - Sensitivity to weather change [Unknown]
